FAERS Safety Report 15021178 (Version 2)
Quarter: 2018Q3

REPORT INFORMATION
  Report Type: Report from Study
  Country: US (occurrence: US)
  Receive Date: 20180618
  Receipt Date: 20180815
  Transmission Date: 20181010
  Serious: Yes (Hospitalization)
  Sender: FDA-Public Use
  Company Number: US-KERYX BIOPHARMACEUTICALS INC.-2018US004059

PATIENT
  Age: 72 Year
  Sex: Male

DRUGS (1)
  1. AURYXIA [Suspect]
     Active Substance: TETRAFERRIC TRICITRATE DECAHYDRATE
     Indication: HYPERPHOSPHATAEMIA
     Dosage: 8 G, QD
     Route: 048
     Dates: start: 20171031

REACTIONS (3)
  - Oedema [Not Recovered/Not Resolved]
  - Blood glucose increased [Not Recovered/Not Resolved]
  - Dyspnoea [Not Recovered/Not Resolved]

NARRATIVE: CASE EVENT DATE: 20180604
